FAERS Safety Report 10724550 (Version 2)
Quarter: 2015Q2

REPORT INFORMATION
  Report Type: Spontaneous
  Country: US (occurrence: US)
  Receive Date: 20150120
  Receipt Date: 20150430
  Transmission Date: 20150821
  Serious: No
  Sender: FDA-Public Use
  Company Number: US-009507513-1501USA002123

PATIENT
  Age: 15 Year
  Sex: Female
  Weight: 63.39 kg

DRUGS (3)
  1. NEXPLANON [Suspect]
     Active Substance: ETONOGESTREL
     Dosage: 1 ROD IN THE ARM
     Route: 059
     Dates: start: 20141229, end: 20141229
  2. NEXPLANON [Suspect]
     Active Substance: ETONOGESTREL
     Indication: CONTRACEPTION
     Dosage: 1 ROD IN THE ARM
     Route: 059
     Dates: start: 20141229, end: 20141229
  3. NEXPLANON [Suspect]
     Active Substance: ETONOGESTREL
     Dosage: 1 ROD IN THE ARM
     Route: 059
     Dates: start: 20141229

REACTIONS (3)
  - Device difficult to use [Recovered/Resolved with Sequelae]
  - Device dislocation [Recovered/Resolved with Sequelae]
  - No adverse event [Unknown]

NARRATIVE: CASE EVENT DATE: 20141229
